FAERS Safety Report 25722772 (Version 4)
Quarter: 2025Q4

REPORT INFORMATION
  Report Type: Spontaneous
  Country: EU (occurrence: EU)
  Receive Date: 20250825
  Receipt Date: 20251022
  Transmission Date: 20260117
  Serious: Yes (Hospitalization, Other)
  Sender: AMGEN
  Company Number: EU-AMGEN-BELSP2025168508

PATIENT
  Age: 29 Year
  Sex: Female
  Weight: 56 kg

DRUGS (4)
  1. ARANESP [Suspect]
     Active Substance: DARBEPOETIN ALFA
     Indication: Sickle cell disease
     Dosage: UNK, 500 MCG (TWO SYRINGES)
     Route: 065
  2. ARANESP [Suspect]
     Active Substance: DARBEPOETIN ALFA
     Indication: Alloimmunisation
  3. ARANESP [Suspect]
     Active Substance: DARBEPOETIN ALFA
     Indication: Off label use
  4. HYDREA [Concomitant]
     Active Substance: HYDROXYUREA
     Indication: Sickle cell disease
     Dosage: 500 MILLIGRAM, QD
     Dates: end: 20250802

REACTIONS (8)
  - Off label use [Recovered/Resolved]
  - Pre-eclampsia [Unknown]
  - Intra-abdominal haemorrhage [Recovered/Resolved]
  - Post procedural infection [Recovered/Resolved]
  - Caesarean section [Unknown]
  - Maternal exposure during pregnancy [Recovered/Resolved]
  - Premature delivery [Unknown]
  - Reticulocyte count increased [Unknown]

NARRATIVE: CASE EVENT DATE: 20250101
